FAERS Safety Report 8513821-0 (Version None)
Quarter: 2012Q3

REPORT INFORMATION
  Report Type: 
  Country: None (occurrence: None)
  Receive Date: 20120717
  Receipt Date: 20120706
  Transmission Date: 20120928
  Serious: Yes (Other)
  Sender: FDA-Public Use
  Company Number: FR-VERTEX PHARMACEUTICALS INC.-000000000000001130

PATIENT
  Sex: Male
  Weight: 55 kg

DRUGS (3)
  1. VIRAFERONPEG [Concomitant]
     Indication: HEPATITIS C
     Dosage: 0.5 ML  PER DAY
     Dates: start: 20120102, end: 20120704
  2. REBETOL [Concomitant]
     Indication: HEPATITIS C
     Dosage: 400MG-0-600MG
     Dates: start: 20120102, end: 20120704
  3. INCIVO [Suspect]
     Indication: HEPATITIS C
     Dosage: DOSAGE FORM: TABLET
     Dates: start: 20120102, end: 20120326

REACTIONS (1)
  - HEPATIC NEOPLASM MALIGNANT RECURRENT [None]
